FAERS Safety Report 25399257 (Version 1)
Quarter: 2025Q2

REPORT INFORMATION
  Report Type: Spontaneous
  Country: GB (occurrence: GB)
  Receive Date: 20250605
  Receipt Date: 20250605
  Transmission Date: 20250717
  Serious: Yes (Other)
  Sender: AMGEN
  Company Number: GB-PFIZER INC-PV202500064802

PATIENT
  Age: 73 Year
  Sex: Female

DRUGS (1)
  1. ENBREL [Suspect]
     Active Substance: ETANERCEPT
     Indication: Rheumatoid arthritis
     Dosage: 50 MG, WEEKLY
     Route: 058

REACTIONS (6)
  - Rib fracture [Unknown]
  - Fall [Unknown]
  - Back injury [Unknown]
  - Post-acute COVID-19 syndrome [Unknown]
  - Feeling abnormal [Unknown]
  - Pain [Unknown]
